FAERS Safety Report 5451250-7 (Version None)
Quarter: 2007Q3

REPORT INFORMATION
  Report Type: 
  Country: None (occurrence: None)
  Receive Date: 20070912
  Receipt Date: 20070912
  Transmission Date: 20080115
  Serious: Yes (Life-Threatening, Hospitalization)
  Sender: FDA-Public Use
  Company Number: None

PATIENT
  Age: 68 Year
  Sex: Male
  Weight: 112.4 kg

DRUGS (11)
  1. ROSIGLITAZONE [Suspect]
     Indication: DIABETES MELLITUS
     Dosage: 4 MG DAILY PO
     Route: 048
  2. CELECOXIB [Suspect]
     Indication: ARTHRITIS
     Dosage: 200 MG DAILY PO
     Route: 048
  3. ASPIRIN [Concomitant]
  4. METFORMIN HCL [Concomitant]
  5. GLYBURIDE [Concomitant]
  6. ROSIGLITAZONE [Concomitant]
  7. ALLOPURINOL [Concomitant]
  8. ESCITALOPRAM OXALATE [Concomitant]
  9. LOSARTAN POSTASSIUM [Concomitant]
  10. HYDROCHLOROTHIAZIDE [Concomitant]
  11. CELECOXIB [Concomitant]

REACTIONS (9)
  - ACUTE MYOCARDIAL INFARCTION [None]
  - ARTHRALGIA [None]
  - CHEST PAIN [None]
  - CORONARY ARTERY DISEASE [None]
  - DYSPNOEA [None]
  - HYPOTENSION [None]
  - PAIN [None]
  - PAIN IN EXTREMITY [None]
  - URINE OUTPUT DECREASED [None]
